FAERS Safety Report 4801654-8 (Version None)
Quarter: 2005Q3

REPORT INFORMATION
  Report Type: 
  Country: None (occurrence: None)
  Receive Date: 20050929
  Receipt Date: 20050726
  Transmission Date: 20060218
  Serious: Yes (Death)
  Sender: FDA-Public Use
  Company Number: 05P-163-0306616-00

PATIENT
  Age: 82 Year
  Sex: Female

DRUGS (9)
  1. HUMIRA [Suspect]
     Indication: RHEUMATOID ARTHRITIS
     Dosage: SEE IMAGE
     Route: 058
     Dates: start: 20040201, end: 20040920
  2. HUMIRA [Suspect]
     Indication: RHEUMATOID ARTHRITIS
     Dosage: SEE IMAGE
     Route: 058
     Dates: start: 20040920
  3. METHOTREXATE SODIUM [Concomitant]
  4. MELOXICAM [Concomitant]
  5. PRAVASTATIN SODIUM [Concomitant]
  6. ESTRADERM [Concomitant]
  7. AMLODIPINE BESYLATE [Concomitant]
  8. CLOPIDOGREL BISULFATE [Concomitant]
  9. DEXTROPROPOXYPHENE HYDROCHLORIDE [Concomitant]

REACTIONS (3)
  - BRONCHITIS [None]
  - CEREBROVASCULAR ACCIDENT [None]
  - DEATH [None]
